FAERS Safety Report 6490680-1 (Version None)
Quarter: 2009Q4

REPORT INFORMATION
  Report Type: 
  Country: None (occurrence: None)
  Receive Date: 20091211
  Receipt Date: 20091201
  Transmission Date: 20100525
  Serious: Yes (Hospitalization)
  Sender: FDA-Public Use
  Company Number: A0834470A

PATIENT
  Age: 59 Year
  Sex: Male

DRUGS (3)
  1. AVANDIA [Suspect]
     Dosage: 4MG PER DAY
     Route: 048
     Dates: start: 20030221, end: 20070701
  2. AVANDAMET [Suspect]
     Route: 048
     Dates: start: 20040216, end: 20050301
  3. AVANDARYL [Suspect]
     Route: 048
     Dates: start: 20070710, end: 20090411

REACTIONS (4)
  - AMNESIA [None]
  - CEREBROVASCULAR ACCIDENT [None]
  - DEPRESSION [None]
  - THROMBOSIS [None]
